FAERS Safety Report 5649204-0 (Version None)
Quarter: 2008Q1

REPORT INFORMATION
  Report Type: 
  Country: None (occurrence: None)
  Receive Date: 20080131
  Receipt Date: 20071010
  Transmission Date: 20080703
  Serious: Yes (Other)
  Sender: FDA-Public Use
  Company Number: US200710002614

PATIENT
  Age: 35 Year
  Sex: Female

DRUGS (5)
  1. BYETTA [Suspect]
     Indication: TYPE 2 DIABETES MELLITUS
     Dosage: 5 UG, 2/D, SUBCUTANEOUS
     Route: 058
     Dates: start: 20070901, end: 20071001
  2. AMARYL [Concomitant]
  3. ACTOS /USA/ (PIOGLITAZONE HYDROCHLORIDE) [Concomitant]
  4. FORTAMET (METFORMIN HYDROCHLORIDE) [Concomitant]
  5. AMOXICILLIN [Concomitant]

REACTIONS (3)
  - HYPERSENSITIVITY [None]
  - SWOLLEN TONGUE [None]
  - URTICARIA [None]
